FAERS Safety Report 9706480 (Version 4)
Quarter: 2013Q4

REPORT INFORMATION
  Report Type: Report from Study
  Country: CA (occurrence: CA)
  Receive Date: 20131125
  Receipt Date: 20131205
  Transmission Date: 20140711
  Serious: Yes (Hospitalization, Other)
  Sender: FDA-Public Use
  Company Number: CA-ROCHE-1180572

PATIENT
  Age: 62 Year
  Sex: Female
  Weight: 59.9 kg

DRUGS (18)
  1. ACTEMRA [Suspect]
     Indication: RHEUMATOID ARTHRITIS
     Route: 042
     Dates: start: 20121214, end: 20130918
  2. ACTEMRA [Suspect]
     Route: 042
     Dates: start: 20121214
  3. ACTEMRA [Suspect]
     Route: 042
     Dates: start: 20130114
  4. ACTEMRA [Suspect]
     Route: 042
     Dates: start: 20130312
  5. ACTEMRA [Suspect]
     Route: 042
     Dates: start: 20130406
  6. ACTEMRA [Suspect]
     Route: 042
     Dates: start: 20130529
  7. ACTEMRA [Suspect]
     Route: 042
     Dates: start: 20130626
  8. ACTEMRA [Suspect]
     Route: 042
     Dates: start: 20130821, end: 20130918
  9. RITUXAN [Suspect]
     Indication: RHEUMATOID ARTHRITIS
     Route: 042
     Dates: start: 20131015, end: 20131119
  10. SULFASALAZINE [Concomitant]
     Route: 048
  11. PLAQUENIL [Concomitant]
     Route: 065
  12. DEPO-MEDROL [Concomitant]
     Dosage: AS REQUIRED
     Route: 030
  13. TARGIN [Concomitant]
     Route: 065
  14. CELEBREX [Concomitant]
     Route: 065
  15. BENADRYL (CANADA) [Concomitant]
     Route: 048
     Dates: end: 20131119
  16. TYLENOL #1 (CANADA) [Concomitant]
     Route: 065
  17. SOLU-MEDROL [Concomitant]
     Route: 065
  18. ACETAMINOFEN [Concomitant]
     Route: 048
     Dates: start: 20131015, end: 20131119

REACTIONS (20)
  - Alpha haemolytic streptococcal infection [Recovering/Resolving]
  - Oral herpes [Not Recovered/Not Resolved]
  - Loss of consciousness [Unknown]
  - Blood pressure increased [Unknown]
  - Staphylococcal infection [Recovered/Resolved]
  - Presyncope [Unknown]
  - Abnormal sensation in eye [Unknown]
  - Infusion related reaction [Recovered/Resolved]
  - Pain [Recovering/Resolving]
  - Ulcer [Not Recovered/Not Resolved]
  - Staphylococcal infection [Recovered/Resolved]
  - Glossodynia [Not Recovered/Not Resolved]
  - Swollen tongue [Not Recovered/Not Resolved]
  - Weight decreased [Not Recovered/Not Resolved]
  - Hypotension [Not Recovered/Not Resolved]
  - Drug effect decreased [Unknown]
  - Laryngitis [Recovering/Resolving]
  - Infusion related reaction [Unknown]
  - Body temperature increased [Recovered/Resolved]
  - Arthritis [Not Recovered/Not Resolved]
